FAERS Safety Report 8544929-1 (Version None)
Quarter: 2012Q3

REPORT INFORMATION
  Report Type: 
  Country: None (occurrence: None)
  Receive Date: 20120727
  Receipt Date: 20120717
  Transmission Date: 20120928
  Serious: Yes (Disabling)
  Sender: FDA-Public Use
  Company Number: PT-009507513-1207PRT006943

PATIENT

DRUGS (2)
  1. SOY ISOFLAVONES [Concomitant]
  2. ALENDRONATE SODIUM [Suspect]
     Indication: OSTEOPOROSIS
     Dosage: UNK, QW
     Route: 048
     Dates: start: 20120707

REACTIONS (6)
  - PAIN [None]
  - PAIN IN EXTREMITY [None]
  - ASTHENIA [None]
  - DECREASED APPETITE [None]
  - MUSCULOSKELETAL PAIN [None]
  - FEELING ABNORMAL [None]
